FAERS Safety Report 9934841 (Version 1)
Quarter: 2014Q1

REPORT INFORMATION
  Report Type: Spontaneous
  Country: BR (occurrence: BR)
  Receive Date: 20140228
  Receipt Date: 20140228
  Transmission Date: 20141002
  Serious: Yes (Other)
  Sender: FDA-Public Use
  Company Number: PHHY2014BR024990

PATIENT
  Age: 78 Year
  Sex: Female
  Weight: 79 kg

DRUGS (11)
  1. EXELON PATCH [Suspect]
     Indication: MEMORY IMPAIRMENT
     Dosage: 9.5 MG, 1 PATCH DAILY
     Route: 062
  2. EXELON PATCH [Suspect]
     Dosage: 13.3 MG, DAILY
     Route: 062
  3. VICTOZA [Concomitant]
     Indication: DIABETES MELLITUS
     Dosage: 1 DF, DAILY (1 APPLICATION DAILY)
     Route: 058
  4. PRISTIQ [Concomitant]
     Indication: BLOOD PRESSURE
     Dosage: 1 DF, DAILY
     Route: 048
  5. BENICAR [Concomitant]
     Indication: HYPERTENSION
     Dosage: 1 DF, DAILY
     Route: 048
  6. OMEPRAZOLE [Concomitant]
     Indication: ABDOMINAL DISCOMFORT
     Dosage: 1 DF, DAILY
     Route: 048
  7. XARELTO [Concomitant]
     Indication: ATRIAL FIBRILLATION
     Dosage: 1 DF, DAILY
     Route: 048
  8. PROLIA [Concomitant]
     Indication: BONE DECALCIFICATION
     Dosage: 1 DF, BID (2 TIMES PER YEAR ON FEBRUARY AND AUGUST))
     Route: 058
  9. PROLOPA [Concomitant]
     Indication: TREMOR
     Dosage: 1 DF, DAILY (SPLIT IN 3 PARTS: HALF IN THE MORNING AND QUARTER IN THE AFTERNOON AND AT NIGHT)
     Route: 048
     Dates: start: 201208
  10. EUTHYROX [Concomitant]
     Indication: BLOOD SODIUM INCREASED
     Dosage: 0.5 DF, DAILY
     Route: 048
  11. DESOL [Concomitant]
     Indication: VITAMIN SUPPLEMENTATION
     Dosage: 10 DRP, DAILY
     Route: 048

REACTIONS (3)
  - Cerebellar atrophy [Not Recovered/Not Resolved]
  - Stress [Unknown]
  - Tremor [Not Recovered/Not Resolved]
